FAERS Safety Report 22053327 (Version 1)
Quarter: 2023Q1

REPORT INFORMATION
  Report Type: Spontaneous
  Country: US (occurrence: US)
  Receive Date: 20230302
  Receipt Date: 20230302
  Transmission Date: 20230418
  Serious: Yes (Hospitalization)
  Sender: FDA-Public Use
  Company Number: US-MYLANLABS-2023M1021713

PATIENT
  Age: 12 Year
  Sex: Male

DRUGS (4)
  1. PREDNISONE [Suspect]
     Active Substance: PREDNISONE
     Indication: Lichen planus pemphigoides
     Dosage: 60 MILLIGRAM, QD
     Route: 048
  2. NIVOLUMAB [Concomitant]
     Active Substance: NIVOLUMAB
     Indication: Naevoid melanoma
     Dosage: 3 MILLIGRAM/KILOGRAM, BIWEEKLY, THE PATIENT RECEIVED NIVOLUMAB 3 MG/KG (223MG) EVERY....
     Route: 065
  3. BETAMETHASONE DIPROPIONATE [Concomitant]
     Active Substance: BETAMETHASONE DIPROPIONATE
     Indication: Lichen planus pemphigoides
     Dosage: UNK
     Route: 061
  4. TRIAMCINOLONE [Concomitant]
     Active Substance: TRIAMCINOLONE
     Indication: Lichen planus pemphigoides
     Dosage: UNK
     Route: 065

REACTIONS (1)
  - Drug ineffective [Unknown]
